FAERS Safety Report 9669335 (Version 1)
Quarter: 2013Q4

REPORT INFORMATION
  Report Type: Spontaneous
  Country: GB (occurrence: GB)
  Receive Date: 20131105
  Receipt Date: 20131105
  Transmission Date: 20140711
  Serious: Yes (Other)
  Sender: FDA-Public Use
  Company Number: GB-JNJFOC-20131017738

PATIENT
  Age: 53 Year
  Sex: Male
  Weight: 81 kg

DRUGS (9)
  1. RILPIVIRINE [Suspect]
     Indication: PRODUCT USED FOR UNKNOWN INDICATION
     Route: 048
     Dates: start: 20130414, end: 20130914
  2. DARUNAVIR [Concomitant]
  3. AMLODIPINE [Concomitant]
  4. ATORVASTATIN [Concomitant]
  5. KIVEXA [Concomitant]
  6. RALTEGRAVIR POTASSIUM [Concomitant]
  7. RAMIPRIL [Concomitant]
  8. RITONAVIR [Concomitant]
  9. LAMIVUDINE [Concomitant]

REACTIONS (1)
  - Angina pectoris [Recovered/Resolved]
